FAERS Safety Report 10401502 (Version 1)
Quarter: 2014Q3

REPORT INFORMATION
  Report Type: Spontaneous
  Country: US (occurrence: None)
  Receive Date: 20140820
  Receipt Date: 20140820
  Transmission Date: 20150326
  Serious: No
  Sender: FDA-Public Use
  Company Number: None

PATIENT
  Age: 50 Year
  Sex: Female

DRUGS (1)
  1. NEULASTA [Suspect]
     Active Substance: PEGFILGRASTIM
     Indication: ILL-DEFINED DISORDER
     Route: 058
     Dates: start: 20140630, end: 20140717

REACTIONS (2)
  - Pyrexia [None]
  - Pain [None]

NARRATIVE: CASE EVENT DATE: 20140717
